FAERS Safety Report 23419422 (Version 1)
Quarter: 2024Q1

REPORT INFORMATION
  Report Type: Other
  Country: CA (occurrence: CA)
  Receive Date: 20240118
  Receipt Date: 20240118
  Transmission Date: 20240409
  Serious: Yes (Other)
  Sender: FDA-Public Use
  Company Number: CA-BIOCON-BBL2023001304

PATIENT
  Age: 34 Year
  Sex: Female
  Weight: 111 kg

DRUGS (3)
  1. HULIO [Suspect]
     Active Substance: ADALIMUMAB-FKJP
     Indication: Crohn^s disease
     Dosage: 40.0 MG, Q2W
     Route: 065
  2. HULIO [Suspect]
     Active Substance: ADALIMUMAB-FKJP
     Dosage: 40 MG, QW
     Route: 065
  3. AZATHIOPRINE [Concomitant]
     Active Substance: AZATHIOPRINE
     Indication: Product used for unknown indication
     Dosage: 225 MG, QD
     Route: 065

REACTIONS (5)
  - Impaired quality of life [Not Recovered/Not Resolved]
  - Procedural pain [Not Recovered/Not Resolved]
  - Tooth abscess [Not Recovered/Not Resolved]
  - Asthenia [Not Recovered/Not Resolved]
  - Crohn^s disease [Not Recovered/Not Resolved]
